FAERS Safety Report 26078627 (Version 1)
Quarter: 2025Q4

REPORT INFORMATION
  Report Type: Spontaneous
  Country: US (occurrence: US)
  Receive Date: 20251123
  Receipt Date: 20251123
  Transmission Date: 20260118
  Serious: No
  Sender: GALPHARM INTERNATIONAL
  Company Number: US-PERRIGO-24US010435

PATIENT
  Age: 24 Year
  Sex: Female
  Weight: 81.633 kg

DRUGS (3)
  1. OPILL [Suspect]
     Active Substance: NORGESTREL
     Indication: Contraception
     Dosage: 0.075 MG, QD
     Route: 048
     Dates: start: 20241028
  2. MIRTAZAPINE [Concomitant]
     Active Substance: MIRTAZAPINE
     Indication: Depression
     Dosage: UNK
     Route: 065
  3. CITALOPRAM [Concomitant]
     Active Substance: CITALOPRAM
     Indication: Anxiety
     Dosage: UNK
     Route: 065

REACTIONS (2)
  - Menstrual discomfort [Not Recovered/Not Resolved]
  - Dysmenorrhoea [Not Recovered/Not Resolved]

NARRATIVE: CASE EVENT DATE: 20241028
